FAERS Safety Report 16078887 (Version 1)
Quarter: 2019Q1

REPORT INFORMATION
  Report Type: Spontaneous
  Country: US (occurrence: US)
  Receive Date: 20190315
  Receipt Date: 20190315
  Transmission Date: 20190418
  Serious: No
  Sender: FDA-Public Use
  Company Number: US-MILLICENT HOLDINGS LTD.-MILL20190158

PATIENT
  Sex: Female

DRUGS (1)
  1. FEMRING [Suspect]
     Active Substance: ESTRADIOL ACETATE
     Indication: PRODUCT USED FOR UNKNOWN INDICATION
     Dosage: 0.10 MG
     Route: 067

REACTIONS (4)
  - Inappropriate schedule of product administration [None]
  - Menopausal symptoms [Not Recovered/Not Resolved]
  - Drug effect incomplete [Unknown]
  - Sleep disorder [Not Recovered/Not Resolved]
